FAERS Safety Report 11594018 (Version 1)
Quarter: 2015Q4

REPORT INFORMATION
  Report Type: Spontaneous
  Country: US (occurrence: US)
  Receive Date: 20151005
  Receipt Date: 20151005
  Transmission Date: 20160304
  Serious: No
  Sender: FDA-Public Use
  Company Number: US-PERRIGO-14US009428

PATIENT
  Age: 48 Year
  Sex: Female

DRUGS (3)
  1. DOXYLAMINE SUCCINATE 25 MG 441 [Suspect]
     Active Substance: DOXYLAMINE SUCCINATE
     Dosage: 1/4 TABLET, QD AT BEDTIME
     Route: 048
     Dates: start: 201409
  2. DOXYLAMINE SUCCINATE 25 MG 441 [Suspect]
     Active Substance: DOXYLAMINE SUCCINATE
     Indication: INSOMNIA
     Dosage: 25 MG, QD AT BEDTIME
     Route: 048
     Dates: start: 201409, end: 201409
  3. DOXYLAMINE SUCCINATE 25 MG 441 [Suspect]
     Active Substance: DOXYLAMINE SUCCINATE
     Dosage: 12.5 MG, QD AT BEDTIME
     Route: 048
     Dates: start: 201409, end: 201409

REACTIONS (3)
  - Somnolence [Recovered/Resolved]
  - Underdose [Unknown]
  - Wrong technique in product usage process [Unknown]

NARRATIVE: CASE EVENT DATE: 201409
